FAERS Safety Report 7340421-0 (Version None)
Quarter: 2011Q1

REPORT INFORMATION
  Report Type: 
  Country: None (occurrence: None)
  Receive Date: 20110228
  Receipt Date: 20110217
  Transmission Date: 20110831
  Serious: Yes (Other)
  Sender: FDA-Public Use
  Company Number: 2011SP003047

PATIENT
  Age: 80 Year
  Sex: Male

DRUGS (2)
  1. ESLAX (ROCURONIUM BROMIDE /01245702/) [Suspect]
     Indication: RESPIRATORY DISORDER
     Dosage: IV
     Route: 042
     Dates: start: 20110116
  2. MIOBLOCK [Concomitant]

REACTIONS (1)
  - HEART RATE DECREASED [None]
